FAERS Safety Report 23455919 (Version 1)
Quarter: 2024Q1

REPORT INFORMATION
  Report Type: Spontaneous
  Country: US (occurrence: None)
  Receive Date: 20240129
  Receipt Date: 20240129
  Transmission Date: 20240410
  Serious: No
  Sender: FDA-Public Use
  Company Number: None

PATIENT
  Sex: 0

DRUGS (1)
  1. GABAPENTIN [Suspect]
     Active Substance: GABAPENTIN

REACTIONS (6)
  - Drug ineffective [None]
  - Dizziness [None]
  - Disturbance in attention [None]
  - Mental impairment [None]
  - Viral infection [None]
  - Ill-defined disorder [None]
